FAERS Safety Report 6239401-8 (Version None)
Quarter: 2009Q2

REPORT INFORMATION
  Report Type: 
  Country: None (occurrence: None)
  Receive Date: 20090618
  Receipt Date: 20090618
  Transmission Date: 20091009
  Serious: No
  Sender: FDA-Public Use
  Company Number: None

PATIENT

DRUGS (3)
  1. ZICAM [Suspect]
     Indication: MULTIPLE ALLERGIES
     Dates: start: 20080101, end: 20090529
  2. ZICAM [Suspect]
     Indication: NASOPHARYNGITIS
     Dates: start: 20080101, end: 20090529
  3. ZICAM [Suspect]
     Indication: SINUS DISORDER
     Dates: start: 20080101, end: 20090529

REACTIONS (1)
  - NO ADVERSE EVENT [None]
